FAERS Safety Report 19180364 (Version 3)
Quarter: 2021Q2

REPORT INFORMATION
  Report Type: Spontaneous
  Country: US (occurrence: US)
  Receive Date: 20210426
  Receipt Date: 20210526
  Transmission Date: 20210717
  Serious: Yes (Other)
  Sender: FDA-Public Use
  Company Number: US-SA-2021SA134915

PATIENT
  Age: 45 Year
  Sex: Male

DRUGS (2)
  1. AUBAGIO [Suspect]
     Active Substance: TERIFLUNOMIDE
     Indication: MULTIPLE SCLEROSIS
     Dosage: 7 MG, QD
     Route: 048
     Dates: start: 20210326
  2. AUBAGIO [Suspect]
     Active Substance: TERIFLUNOMIDE
     Indication: PLASMA CELL MYELOMA

REACTIONS (6)
  - Fall [Unknown]
  - Dizziness [Unknown]
  - Movement disorder [Unknown]
  - Product use in unapproved indication [Unknown]
  - Sexual dysfunction [Unknown]
  - Balance disorder [Unknown]
